FAERS Safety Report 5271475-3 (Version None)
Quarter: 2007Q1

REPORT INFORMATION
  Report Type: 
  Country: None (occurrence: None)
  Receive Date: 20070321
  Receipt Date: 20070307
  Transmission Date: 20070707
  Serious: Yes (Hospitalization, Other)
  Sender: FDA-Public Use
  Company Number: US-SHR-US-2006-014533

PATIENT
  Age: 54 Year
  Sex: Female
  Weight: 63.492 kg

DRUGS (11)
  1. BETASERON [Suspect]
     Indication: SECONDARY PROGRESSIVE MULTIPLE SCLEROSIS
     Dosage: 8 MIU, EVERY 2D
     Route: 058
     Dates: start: 20061015
  2. BETASERON [Suspect]
     Route: 058
     Dates: start: 20041111, end: 20051028
  3. BETASERON [Suspect]
     Dosage: 8 MIU, EVERY 2D
     Route: 058
     Dates: start: 20051030, end: 20060515
  4. DEXTROAMPHETAMINE SULFATE [Concomitant]
     Indication: FATIGUE
     Dosage: 10 MG, UNK
     Route: 048
     Dates: start: 20040101
  5. LEVOTHYROXINE SODIUM [Concomitant]
     Indication: HYPOTHYROIDISM
     Dosage: .1 MG/D, UNK
     Route: 048
     Dates: start: 19900101
  6. ALPRAZOLAM [Concomitant]
     Indication: ANXIETY
     Dosage: 1 MG, UNK
     Route: 048
     Dates: start: 20000101
  7. LEXAPRO [Concomitant]
     Indication: DEPRESSION
     Dosage: 20 MG, UNK
     Route: 048
     Dates: start: 20060101
  8. PREMPRO [Concomitant]
     Dosage: 0.625/25
     Route: 048
     Dates: start: 20010101
  9. FLUOXETINE [Concomitant]
     Indication: DEPRESSION
     Dosage: 20 MG, 2X/DAY
  10. DEXEDRINE [Concomitant]
     Indication: FATIGUE
     Dosage: 10 MG, 4X/DAY
     Route: 048
  11. ACETYLSALICYLIC ACID SRT [Concomitant]
     Dates: start: 20050901

REACTIONS (22)
  - AUTOMATIC BLADDER [None]
  - CHOLELITHIASIS [None]
  - CLOSTRIDIUM DIFFICILE COLITIS [None]
  - COLON CANCER [None]
  - DRY MOUTH [None]
  - DYSPHAGIA [None]
  - FALL [None]
  - GASTROENTERITIS BACTERIAL [None]
  - HERNIA REPAIR [None]
  - INTERVERTEBRAL DISC PROTRUSION [None]
  - MEMORY IMPAIRMENT [None]
  - MULTIPLE SCLEROSIS [None]
  - NICOTINE DEPENDENCE [None]
  - PAIN [None]
  - PELVIC FRACTURE [None]
  - POST PROCEDURAL INFECTION [None]
  - PUPILLARY REFLEX IMPAIRED [None]
  - RIB FRACTURE [None]
  - SOFT TISSUE INJURY [None]
  - SPINAL FRACTURE [None]
  - URINARY INCONTINENCE [None]
  - WAIST CIRCUMFERENCE INCREASED [None]
